FAERS Safety Report 8308596-4 (Version None)
Quarter: 2012Q2

REPORT INFORMATION
  Report Type: 
  Country: None (occurrence: None)
  Receive Date: 20120424
  Receipt Date: 20120418
  Transmission Date: 20120825
  Serious: Yes (Hospitalization)
  Sender: FDA-Public Use
  Company Number: US-NAPPMUNDI-DEU-2012-0008847

PATIENT
  Sex: Female

DRUGS (2)
  1. TRAMADOL HCL [Suspect]
     Indication: PROCEDURAL PAIN
     Dosage: 25 MG, Q6H
  2. HYDROMORPHONE HCL [Suspect]
     Indication: PROCEDURAL PAIN
     Dosage: UNK UNK, SEE TEXT

REACTIONS (2)
  - DELIRIUM [None]
  - UNRESPONSIVE TO STIMULI [None]
